FAERS Safety Report 6692881-6 (Version None)
Quarter: 2010Q2

REPORT INFORMATION
  Report Type: 
  Country: None (occurrence: None)
  Receive Date: 20100419
  Receipt Date: 20100412
  Transmission Date: 20101027
  Serious: Yes (Death)
  Sender: FDA-Public Use
  Company Number: OSCN-PR-0901S-0044

PATIENT
  Sex: Male

DRUGS (1)
  1. GADOLINIUM (UNSPECIFIED) [Suspect]
     Indication: HYPOTHALAMO-PITUITARY DISORDER
     Dates: start: 20051206, end: 20051206

REACTIONS (1)
  - NEPHROGENIC SYSTEMIC FIBROSIS [None]
